FAERS Safety Report 6432316-1 (Version None)
Quarter: 2009Q4

REPORT INFORMATION
  Report Type: 
  Country: None (occurrence: None)
  Receive Date: 20091109
  Receipt Date: 20091103
  Transmission Date: 20100525
  Serious: Yes (Death)
  Sender: FDA-Public Use
  Company Number: US-CUBIST-2009S1000492

PATIENT

DRUGS (2)
  1. CUBICIN [Suspect]
     Indication: ENDOCARDITIS
  2. CUBICIN [Suspect]
     Indication: STAPHYLOCOCCAL BACTERAEMIA

REACTIONS (4)
  - ARTHRITIS BACTERIAL [None]
  - DRUG INEFFECTIVE [None]
  - MINIMUM INHIBITORY CONCENTRATION [None]
  - STAPHYLOCOCCAL BACTERAEMIA [None]
